FAERS Safety Report 8557334-9 (Version None)
Quarter: 2012Q3

REPORT INFORMATION
  Report Type: 
  Country: None (occurrence: None)
  Receive Date: 20120801
  Receipt Date: 20120723
  Transmission Date: 20120928
  Serious: Yes (Hospitalization)
  Sender: FDA-Public Use
  Company Number: FR-ASTRAZENECA-2012SE52088

PATIENT
  Age: 28185 Day
  Sex: Female

DRUGS (4)
  1. CANDESARTAN CILEXETIL AND HYDROCHLOROTHIAZIDE [Suspect]
     Route: 048
     Dates: start: 20120301, end: 20120409
  2. ACETAMINOPHEN [Concomitant]
  3. PAROXETINE [Suspect]
     Route: 048
  4. OMEPRAZOLE [Concomitant]

REACTIONS (2)
  - MALAISE [None]
  - HYPONATRAEMIA [None]
